FAERS Safety Report 14303813 (Version 1)
Quarter: 2017Q4

REPORT INFORMATION
  Report Type: Spontaneous
  Country: NO (occurrence: NO)
  Receive Date: 20171219
  Receipt Date: 20171219
  Transmission Date: 20180321
  Serious: Yes (Disabling)
  Sender: FDA-Public Use
  Company Number: NO-OTSUKA-EU-2014-10222

PATIENT
  Sex: Female

DRUGS (10)
  1. RISPERIDONE. [Concomitant]
     Active Substance: RISPERIDONE
     Indication: PSYCHOTIC DISORDER
     Dosage: 4 MG, QD
     Route: 048
     Dates: start: 2007
  2. FLUOXETINE [Concomitant]
     Active Substance: FLUOXETINE HYDROCHLORIDE
     Indication: DEPRESSION
     Dosage: 60 MG, UNK
     Route: 048
     Dates: start: 2008, end: 2009
  3. NOZINAN [Concomitant]
     Active Substance: LEVOMEPROMAZINE
     Indication: ANXIETY
     Dosage: UNK
     Route: 048
  4. OLANZAPINE. [Concomitant]
     Active Substance: OLANZAPINE
     Indication: PSYCHOTIC DISORDER
     Dosage: UNK
     Route: 048
     Dates: start: 2008
  5. ZYPREXA [Suspect]
     Active Substance: OLANZAPINE
     Indication: PSYCHOTIC DISORDER
     Dosage: UNK
     Route: 048
     Dates: start: 2008
  6. ABILIFY [Suspect]
     Active Substance: ARIPIPRAZOLE
     Indication: PRODUCT USED FOR UNKNOWN INDICATION
     Dosage: 15 MG, QD
     Route: 048
     Dates: start: 2009
  7. EDRONAX [Concomitant]
     Active Substance: REBOXETINE MESYLATE
     Indication: DEPRESSION
     Dosage: 4 MG, UNK
     Route: 048
     Dates: start: 2008
  8. LEVOMEPROMAZINE [Concomitant]
     Active Substance: LEVOMEPROMAZINE
     Indication: ANXIETY
     Dosage: UNK
     Route: 048
  9. RISPERDAL [Suspect]
     Active Substance: RISPERIDONE
     Indication: PSYCHOTIC DISORDER
     Dosage: 4 MG, QD
     Route: 048
     Dates: start: 2007
  10. FLUOXETINE [Concomitant]
     Active Substance: FLUOXETINE HYDROCHLORIDE
     Dosage: 20 MG, UNK
     Route: 048

REACTIONS (2)
  - Tremor [Not Recovered/Not Resolved]
  - Off label use [Unknown]
